FAERS Safety Report 10460484 (Version 1)
Quarter: 2014Q3

REPORT INFORMATION
  Report Type: Spontaneous
  Country: BR (occurrence: BR)
  Receive Date: 20140918
  Receipt Date: 20140918
  Transmission Date: 20150326
  Serious: Yes (Other)
  Sender: FDA-Public Use
  Company Number: BR-AMGEN-BRASP2014071025

PATIENT
  Age: 45 Year
  Sex: Female
  Weight: 90 kg

DRUGS (9)
  1. CLOZAPINE. [Concomitant]
     Active Substance: CLOZAPINE
     Indication: PAIN
     Dosage: 1.5 MG, AS NEEDED (IF PAIN)
  2. ENBREL [Suspect]
     Active Substance: ETANERCEPT
     Indication: RHEUMATOID ARTHRITIS
     Dosage: 50 MG, EVERY 15 DAYS
     Route: 065
     Dates: start: 201407, end: 2014
  3. PURAN [Concomitant]
     Active Substance: LEVOTHYROXINE SODIUM
     Indication: HYPOTHYROIDISM
     Dosage: 1 TABLET (UNSPECIFIED DOSE), DAILY
     Dates: start: 2010
  4. PREDNISONE. [Concomitant]
     Active Substance: PREDNISONE
     Dosage: ONE TABLET (5 MG), DAILY
  5. METHOTREXATE [Concomitant]
     Active Substance: METHOTREXATE
     Dosage: 17.5 MG, WEEKLY (EVERY THURSDAYS)
  6. FOLIC ACID. [Concomitant]
     Active Substance: FOLIC ACID
     Indication: RHEUMATOID ARTHRITIS
     Dosage: 5 MG, WEEKLY (EVERY FRIDAY)
  7. ARAVA [Concomitant]
     Active Substance: LEFLUNOMIDE
     Dosage: ONE TABLET (20 MG), DAILY
  8. PANTOPRAZOLE [Concomitant]
     Active Substance: PANTOPRAZOLE SODIUM
     Indication: OESOPHAGITIS
     Dosage: 40 MG IN CRISIS OF ESOPHAGITIS
  9. OMEPRAZOLE. [Concomitant]
     Active Substance: OMEPRAZOLE
     Dosage: 20 MG, DAILY

REACTIONS (8)
  - Papule [Unknown]
  - Burning sensation [Unknown]
  - Fatigue [Unknown]
  - Poisoning [Unknown]
  - Erythema [Unknown]
  - Hypersensitivity [Unknown]
  - Mass [Unknown]
  - Dyspnoea [Unknown]

NARRATIVE: CASE EVENT DATE: 2014
